FAERS Safety Report 5219130-X (Version None)
Quarter: 2007Q1

REPORT INFORMATION
  Report Type: 
  Country: None (occurrence: None)
  Receive Date: 20070125
  Receipt Date: 20070115
  Transmission Date: 20070707
  Serious: No
  Sender: FDA-Public Use
  Company Number: JP-BAXTER-2007BH000477

PATIENT
  Age: 7 Year
  Sex: Male

DRUGS (1)
  1. RECOMBINATE [Suspect]
     Indication: FACTOR VIII DEFICIENCY
     Route: 065

REACTIONS (2)
  - ANAPHYLACTIC SHOCK [None]
  - LOSS OF CONSCIOUSNESS [None]
